FAERS Safety Report 20405891 (Version 1)
Quarter: 2022Q1

REPORT INFORMATION
  Report Type: Spontaneous
  Country: US (occurrence: US)
  Receive Date: 20220131
  Receipt Date: 20220131
  Transmission Date: 20220424
  Serious: No
  Sender: FDA-Public Use
  Company Number: US-PFIZER INC-2021621736

PATIENT
  Age: 44 Year
  Sex: Female

DRUGS (3)
  1. XELJANZ XR [Suspect]
     Active Substance: TOFACITINIB CITRATE
     Dosage: 11 MG
     Dates: start: 20210514
  2. METHOTREXATE [Concomitant]
     Active Substance: METHOTREXATE
     Dosage: (WHEN NEEDED)
  3. TRAMADOL [Concomitant]
     Active Substance: TRAMADOL
     Dosage: (WHEN NEEDED)

REACTIONS (2)
  - Hot flush [Unknown]
  - Iritis [Unknown]

NARRATIVE: CASE EVENT DATE: 20210518
